FAERS Safety Report 13717119 (Version 1)
Quarter: 2017Q3

REPORT INFORMATION
  Report Type: Spontaneous
  Country: US (occurrence: US)
  Receive Date: 20170704
  Receipt Date: 20170704
  Transmission Date: 20171127
  Serious: Yes (Other)
  Sender: FDA-Public Use
  Company Number: None

PATIENT
  Age: 31 Year
  Sex: Female
  Weight: 67.5 kg

DRUGS (5)
  1. MIBELAS 24 FE [Suspect]
     Active Substance: ETHINYL ESTRADIOL\NORETHINDRONE ACETATE
     Indication: CONTRACEPTION
     Dosage: ?          OTHER STRENGTH:MG;QUANTITY:28 TABLET(S);?
     Route: 048
     Dates: start: 20170324, end: 20170620
  2. PRE-NATAL VITAMINS [Concomitant]
  3. VITAMIN B12 [Concomitant]
     Active Substance: CYANOCOBALAMIN
  4. BIRTH CONTROL [Concomitant]
     Active Substance: UNSPECIFIED INGREDIENT
  5. MIBELAS 24 FE [Suspect]
     Active Substance: ETHINYL ESTRADIOL\NORETHINDRONE ACETATE
     Indication: MENSTRUAL DISORDER
     Dosage: ?          OTHER STRENGTH:MG;QUANTITY:28 TABLET(S);?
     Route: 048
     Dates: start: 20170324, end: 20170620

REACTIONS (16)
  - Heart rate increased [None]
  - Asthenia [None]
  - Polymenorrhoea [None]
  - Decreased appetite [None]
  - Dizziness [None]
  - Product use issue [None]
  - Feeling abnormal [None]
  - Dyspnoea [None]
  - Impaired work ability [None]
  - Impaired driving ability [None]
  - Dehydration [None]
  - Anxiety [None]
  - Nausea [None]
  - Wrong technique in product usage process [None]
  - Vaginal haemorrhage [None]
  - Hypotension [None]

NARRATIVE: CASE EVENT DATE: 20170620
